FAERS Safety Report 4829190-3 (Version None)
Quarter: 2005Q4

REPORT INFORMATION
  Report Type: 
  Country: None (occurrence: None)
  Receive Date: 20051027
  Receipt Date: 20050308
  Transmission Date: 20060501
  Serious: Yes (Hospitalization, Other)
  Sender: FDA-Public Use
  Company Number: HQWYE591526AUG04

PATIENT
  Age: 55 Year
  Sex: Female
  Weight: 65.83 kg

DRUGS (3)
  1. PREMARIN [Suspect]
     Indication: MIGRAINE
     Dosage: ORAL
     Route: 048
     Dates: start: 19950101, end: 20000501
  2. PROVERA [Suspect]
     Indication: MIGRAINE
     Dates: start: 19850101, end: 20000501
  3. IMITREX [Concomitant]

REACTIONS (1)
  - BREAST CANCER [None]
